FAERS Safety Report 14449012 (Version 2)
Quarter: 2018Q1

REPORT INFORMATION
  Report Type: Report from Study
  Country: JP (occurrence: JP)
  Receive Date: 20180126
  Receipt Date: 20180208
  Transmission Date: 20180509
  Serious: Yes (Other)
  Sender: FDA-Public Use
  Company Number: JP-VIIV HEALTHCARE LIMITED-JP2016JPN176270

PATIENT
  Sex: Male

DRUGS (8)
  1. DOLUTEGRAVIR [Suspect]
     Active Substance: DOLUTEGRAVIR
     Dosage: 50 MG, 1D
     Route: 048
     Dates: start: 20141219
  2. VALIXA [Suspect]
     Active Substance: VALGANCICLOVIR
     Indication: CYTOMEGALOVIRUS INFECTION
     Dosage: 900 MG, BID
     Route: 048
     Dates: start: 20141121, end: 20141212
  3. TRUVADA [Suspect]
     Active Substance: EMTRICITABINE\TENOFOVIR DISOPROXIL FUMARATE
     Indication: HIV INFECTION
     Dosage: 1 DF, 1D
     Route: 048
     Dates: start: 20140903, end: 20141121
  4. VALIXA [Suspect]
     Active Substance: VALGANCICLOVIR
     Dosage: 450 MG, BID
     Route: 048
     Dates: start: 20150109, end: 20150508
  5. DOLUTEGRAVIR [Suspect]
     Active Substance: DOLUTEGRAVIR
     Indication: HIV INFECTION
     Dosage: 50 MG, 1D
     Route: 048
     Dates: start: 20140903, end: 20141121
  6. TRUVADA [Suspect]
     Active Substance: EMTRICITABINE\TENOFOVIR DISOPROXIL FUMARATE
     Dosage: 1 DF, 1D
     Route: 048
     Dates: start: 20141219
  7. VALIXA [Suspect]
     Active Substance: VALGANCICLOVIR
     Dosage: 450 MG, BID
     Route: 048
     Dates: start: 20141213, end: 20141218
  8. VALIXA [Suspect]
     Active Substance: VALGANCICLOVIR
     Dosage: 900 MG, BID
     Route: 048
     Dates: start: 20141219, end: 20150108

REACTIONS (4)
  - Immune reconstitution inflammatory syndrome [Recovered/Resolved]
  - Cytomegalovirus chorioretinitis [Recovered/Resolved]
  - Thrombocytopenia [Recovered/Resolved]
  - Influenza [Recovered/Resolved]

NARRATIVE: CASE EVENT DATE: 20141121
